FAERS Safety Report 12206182 (Version 2)
Quarter: 2016Q2

REPORT INFORMATION
  Report Type: Spontaneous
  Country: US (occurrence: US)
  Receive Date: 20160324
  Receipt Date: 20160602
  Transmission Date: 20160815
  Serious: No
  Sender: FDA-Public Use
  Company Number: US-009507513-1603USA007100

PATIENT
  Age: 57 Year
  Sex: Male
  Weight: 103.6 kg

DRUGS (2)
  1. XANAX [Concomitant]
     Active Substance: ALPRAZOLAM
  2. DULERA [Suspect]
     Active Substance: FORMOTEROL FUMARATE DIHYDRATE\MOMETASONE FUROATE
     Indication: ASTHMA
     Dosage: 200 MICROGRAM, 2 PUFFS TWICE DAILY
     Route: 055
     Dates: start: 201601

REACTIONS (5)
  - Respiratory tract congestion [Recovering/Resolving]
  - Product quality issue [Unknown]
  - Dyspnoea [Unknown]
  - Wheezing [Unknown]
  - Drug dose omission [Unknown]

NARRATIVE: CASE EVENT DATE: 20160309
